FAERS Safety Report 7679729-8 (Version None)
Quarter: 2011Q3

REPORT INFORMATION
  Report Type: 
  Country: None (occurrence: None)
  Receive Date: 20110812
  Receipt Date: 20110805
  Transmission Date: 20111222
  Serious: Yes (Hospitalization, Other)
  Sender: FDA-Public Use
  Company Number: US-JNJFOC-20110607393

PATIENT
  Sex: Male
  Weight: 99.79 kg

DRUGS (23)
  1. DURAGESIC-100 [Suspect]
     Route: 062
     Dates: start: 20000101
  2. PRILOSEC [Concomitant]
     Indication: GASTROOESOPHAGEAL REFLUX DISEASE
     Route: 048
  3. NORCO [Concomitant]
     Indication: PAIN
     Route: 048
     Dates: start: 20000101
  4. VALIUM [Concomitant]
     Indication: SLEEP DISORDER THERAPY
     Route: 048
  5. IMITREX [Concomitant]
     Route: 048
  6. CELEBREX [Concomitant]
     Indication: PAIN
     Route: 065
  7. DURAGESIC-100 [Suspect]
     Indication: BACK DISORDER
     Route: 062
     Dates: start: 20000101
  8. DURAGESIC-100 [Suspect]
     Indication: BACK PAIN
     Route: 062
     Dates: start: 20000101
  9. VALIUM [Concomitant]
     Route: 048
     Dates: start: 20000101
  10. VALIUM [Concomitant]
     Route: 048
     Dates: start: 20000101
  11. NEURONTIN [Concomitant]
     Indication: PAIN
     Route: 048
  12. CIALIS [Concomitant]
     Indication: BLOOD TESTOSTERONE
     Route: 048
  13. DURAGESIC-100 [Suspect]
     Route: 062
     Dates: start: 20000101
  14. SOMA [Concomitant]
     Indication: PAIN
     Route: 065
  15. VALIUM [Concomitant]
     Indication: PAIN
     Route: 048
  16. TRAZODONE HCL [Concomitant]
     Indication: SLEEP DISORDER THERAPY
     Route: 048
  17. TRAZODONE HCL [Concomitant]
     Route: 048
     Dates: start: 20000101
  18. PHENERGAN HCL [Concomitant]
     Route: 048
  19. NEURONTIN [Concomitant]
     Indication: SCIATICA
     Route: 048
  20. DILAUDID [Concomitant]
     Indication: PAIN
     Dosage: 4 MG/TAB
     Route: 048
     Dates: start: 20000101
  21. DILAUDID [Concomitant]
     Route: 048
  22. TRAZODONE HCL [Concomitant]
     Indication: PAIN
     Route: 048
     Dates: start: 20000101
  23. TRAZODONE HCL [Concomitant]
     Route: 048

REACTIONS (7)
  - DRUG ADMINISTERED AT INAPPROPRIATE SITE [None]
  - PYREXIA [None]
  - BACK DISORDER [None]
  - CHILLS [None]
  - HYPERHIDROSIS [None]
  - WRONG TECHNIQUE IN DRUG USAGE PROCESS [None]
  - DRUG INEFFECTIVE [None]
